FAERS Safety Report 10204580 (Version 1)
Quarter: 2014Q2

REPORT INFORMATION
  Report Type: Spontaneous
  Country: US (occurrence: US)
  Receive Date: 20140529
  Receipt Date: 20140529
  Transmission Date: 20141212
  Serious: No
  Sender: FDA-Public Use
  Company Number: US-MYLANLABS-2013S1027014

PATIENT
  Age: 6 Year
  Sex: Male

DRUGS (1)
  1. ALBUTEROL SULFATE INHALATION SOLUTION [Suspect]
     Route: 055
     Dates: start: 2011

REACTIONS (3)
  - Drug effect decreased [Not Recovered/Not Resolved]
  - Cough [Not Recovered/Not Resolved]
  - Expired product administered [Not Recovered/Not Resolved]
